FAERS Safety Report 13577757 (Version 1)
Quarter: 2017Q2

REPORT INFORMATION
  Report Type: Spontaneous
  Country: FR (occurrence: FR)
  Receive Date: 20170524
  Receipt Date: 20170524
  Transmission Date: 20170830
  Serious: Yes (Hospitalization)
  Sender: FDA-Public Use
  Company Number: FR-PFIZER INC-2017218309

PATIENT
  Age: 43 Year
  Sex: Female

DRUGS (6)
  1. BILASKA [Concomitant]
     Active Substance: BILASTINE
     Dosage: UNK
     Route: 048
     Dates: start: 201611, end: 201611
  2. MEDROL [Suspect]
     Active Substance: METHYLPREDNISOLONE
     Indication: ODYNOPHAGIA
     Dosage: UNK
     Route: 048
     Dates: start: 201610, end: 201610
  3. VOLTARENE [Suspect]
     Active Substance: DICLOFENAC SODIUM
     Dosage: UNK
     Route: 048
     Dates: start: 20161202
  4. MONAZOL [Concomitant]
     Active Substance: SERTACONAZOLE NITRATE
     Indication: VULVOVAGINAL PRURITUS
     Dosage: 1 DF, SINGLE
     Route: 067
     Dates: start: 20161201, end: 20161201
  5. BETADIN [Concomitant]
     Active Substance: POVIDONE-IODINE
     Dosage: UNK
     Route: 003
     Dates: start: 201610, end: 201610
  6. SPASFON /00765801/ [Concomitant]
     Active Substance: PHLOROGLUCINOL\1,3,5-TRIMETHOXYBENZENE
     Dosage: UNK
     Route: 048
     Dates: start: 201610, end: 201611

REACTIONS (1)
  - Drug reaction with eosinophilia and systemic symptoms [Recovered/Resolved]

NARRATIVE: CASE EVENT DATE: 20161208
